FAERS Safety Report 20421971 (Version 2)
Quarter: 2022Q1

REPORT INFORMATION
  Report Type: Spontaneous
  Country: NL (occurrence: NL)
  Receive Date: 20220203
  Receipt Date: 20220210
  Transmission Date: 20220423
  Serious: Yes (Hospitalization, Other)
  Sender: FDA-Public Use
  Company Number: None

PATIENT
  Age: 62 Year
  Sex: Male
  Weight: 94 kg

DRUGS (3)
  1. AMLODIPINE [Suspect]
     Active Substance: AMLODIPINE BESYLATE
     Indication: Hypertension
     Dosage: 2.5 MILLIGRAM DAILY; 1/2 TABLET, THERAPY END DATE : ASKED BUT UNKNOWN
     Dates: start: 20220103
  2. METFORMIN [Concomitant]
     Active Substance: METFORMIN HYDROCHLORIDE
     Dosage: 500 MG (MILLIGRAM), THERAPY START DATE  AND  THERAPY END DATE : ASKED BUT UNKNOWN , METFORMINE TABL
  3. LINAGLIPTINE / TRAJENTA [Concomitant]
     Dosage: 5 MG, THERAPY START DATE  AND  THERAPY END DATE : ASKED BUT UNKNOWN

REACTIONS (10)
  - Cerebral infarction [Recovering/Resolving]
  - Arthralgia [Recovering/Resolving]
  - Fatigue [Recovering/Resolving]
  - Headache [Recovered/Resolved]
  - Injection site pain [Recovered/Resolved]
  - Malaise [Recovered/Resolved]
  - Myalgia [Recovered/Resolved]
  - Pyrexia [Recovered/Resolved]
  - Injection site haematoma [Recovered/Resolved]
  - Chills [Recovered/Resolved]

NARRATIVE: CASE EVENT DATE: 20211223
